FAERS Safety Report 4518057-6 (Version None)
Quarter: 2004Q4

REPORT INFORMATION
  Report Type: 
  Country: None (occurrence: None)
  Receive Date: 20041203
  Receipt Date: 20041125
  Transmission Date: 20050328
  Serious: Yes (Other)
  Sender: FDA-Public Use
  Company Number: CA-GLAXOSMITHKLINE-A0535406A

PATIENT
  Age: 64 Year
  Sex: Female

DRUGS (3)
  1. FORTAZ [Suspect]
     Indication: ILL-DEFINED DISORDER
     Dosage: 1G THREE TIMES PER DAY
  2. CIPRO [Concomitant]
  3. UNKNOWN MEDICATION [Concomitant]

REACTIONS (2)
  - OTOTOXICITY [None]
  - TINNITUS [None]
